FAERS Safety Report 24575368 (Version 1)
Quarter: 2024Q4

REPORT INFORMATION
  Report Type: Spontaneous
  Country: US (occurrence: US)
  Receive Date: 20241104
  Receipt Date: 20241104
  Transmission Date: 20250115
  Serious: Yes (Hospitalization, Other)
  Sender: HIKMA
  Company Number: US-HIKMA PHARMACEUTICALS USA INC.-US-H14001-24-10092

PATIENT

DRUGS (6)
  1. BC ARTHRITIS [Suspect]
     Active Substance: ASPIRIN\CAFFEINE
     Indication: Pain
     Dosage: 650 MILLIGRAM
     Route: 065
  2. TESTOSTERONE [Suspect]
     Active Substance: TESTOSTERONE
     Indication: Product used for unknown indication
     Dosage: 200MG/ML; TAKES .3CC ONCE A WEEK
     Route: 065
  3. TESTOSTERONE CYPIONATE [Suspect]
     Active Substance: TESTOSTERONE CYPIONATE
     Indication: Androgen deficiency
     Dosage: 200MG/ML; TAKES 3/10 OF A CC ONCE A WEEK
     Route: 065
  4. CLOPIDOGREL [Concomitant]
     Active Substance: CLOPIDOGREL BISULFATE
     Indication: Anticoagulant therapy
     Dosage: UNK
     Route: 065
  5. HYDROCODONE [Concomitant]
     Active Substance: HYDROCODONE
     Indication: Pain
     Dosage: UP TO 10MG, 4 TIMES A DAY
     Route: 065
  6. MORPHINE [Concomitant]
     Active Substance: MORPHINE
     Indication: Pain
     Dosage: 2- 15MG
     Route: 065

REACTIONS (7)
  - Feeling abnormal [Unknown]
  - Asthenia [None]
  - Anger [Unknown]
  - Rectal haemorrhage [Unknown]
  - Constipation [Unknown]
  - COVID-19 [Unknown]
  - Drug ineffective [Unknown]

NARRATIVE: CASE EVENT DATE: 20240101
